FAERS Safety Report 6892197-9 (Version None)
Quarter: 2010Q3

REPORT INFORMATION
  Report Type: 
  Country: None (occurrence: None)
  Receive Date: 20100731
  Receipt Date: 20080227
  Transmission Date: 20110219
  Serious: No
  Sender: FDA-Public Use
  Company Number: US-PFIZER INC-2008018274

PATIENT
  Sex: Female
  Weight: 68.2 kg

DRUGS (2)
  1. NEURONTIN [Suspect]
     Indication: PAIN
     Dates: start: 20070101
  2. METHADONE HCL [Concomitant]

REACTIONS (1)
  - VISUAL ACUITY REDUCED [None]
